FAERS Safety Report 23452540 (Version 1)
Quarter: 2024Q1

REPORT INFORMATION
  Report Type: Spontaneous
  Country: US (occurrence: None)
  Receive Date: 20240129
  Receipt Date: 20240129
  Transmission Date: 20240410
  Serious: Yes (Hospitalization)
  Sender: FDA-Public Use
  Company Number: None

PATIENT
  Age: 54 Year
  Sex: Female

DRUGS (10)
  1. HUMIRA [Suspect]
     Active Substance: ADALIMUMAB
     Route: 058
     Dates: start: 20191106
  2. CROHN^S DISEASE [Concomitant]
  3. RHEUMATOID ARTHRITIS [Concomitant]
  4. DEPRESSION [Concomitant]
  5. VERTIGO [Concomitant]
  6. SLEEP DISORDER [Concomitant]
  7. NUTRITION/ELECTROLYTE/METAB. DIS [Concomitant]
  8. ASTHMA [Concomitant]
  9. ANXIETY [Concomitant]
  10. PAIN OR MIGRAINE [Concomitant]

REACTIONS (5)
  - Crohn^s disease [None]
  - Diarrhoea [None]
  - Abdominal pain [None]
  - Weight decreased [None]
  - Stress [None]
